FAERS Safety Report 6706180-7 (Version None)
Quarter: 2010Q2

REPORT INFORMATION
  Report Type: 
  Country: None (occurrence: None)
  Receive Date: 20100429
  Receipt Date: 20100423
  Transmission Date: 20101027
  Serious: Yes (Death, Hospitalization)
  Sender: FDA-Public Use
  Company Number: ALL1-2010-01662

PATIENT
  Age: 71 Year
  Sex: Male
  Weight: 76.6 kg

DRUGS (6)
  1. FOSRENOL [Suspect]
     Indication: HYPERPHOSPHATAEMIA
     Dosage: 1000 MG AFTER EVERY MEAL, ORAL
     Route: 048
  2. PHOSLO [Concomitant]
  3. UNSPECIFIED HEART RHYTHM MEDICATION [Concomitant]
  4. UNSPECIFIED STOOL MEDICATION [Concomitant]
  5. UNSPECIFIED CHOLESTEROL MEDICATION [Concomitant]
  6. UNSPECIFIED ANXIETY MEDICATION [Concomitant]

REACTIONS (3)
  - DEVICE MALFUNCTION [None]
  - MYOCARDIAL INFARCTION [None]
  - TREATMENT NONCOMPLIANCE [None]
